FAERS Safety Report 6988713-9 (Version None)
Quarter: 2010Q3

REPORT INFORMATION
  Report Type: 
  Country: None (occurrence: None)
  Receive Date: 20100916
  Receipt Date: 20100903
  Transmission Date: 20110219
  Serious: Yes (Other)
  Sender: FDA-Public Use
  Company Number: PHHY2010JP59674

PATIENT
  Age: 78 Year
  Sex: Male

DRUGS (2)
  1. DIOVAN [Suspect]
     Dosage: 80 MG DAILY
     Route: 048
  2. FAMOTIDINE [Suspect]
     Dosage: 40 MG DAILY
     Route: 048

REACTIONS (3)
  - BREAST CANCER [None]
  - BREAST MASS [None]
  - BREAST SWELLING [None]
